FAERS Safety Report 4511590-2 (Version None)
Quarter: 2004Q4

REPORT INFORMATION
  Report Type: 
  Country: None (occurrence: None)
  Receive Date: 20041129
  Receipt Date: 20041011
  Transmission Date: 20050328
  Serious: No
  Sender: FDA-Public Use
  Company Number: US-BRISTOL-MYERS SQUIBB COMPANY-12728176

PATIENT
  Age: 26 Year
  Sex: Male
  Weight: 91 kg

DRUGS (3)
  1. ABILIFY [Suspect]
     Indication: PSYCHOTIC DISORDER
     Route: 048
     Dates: start: 20040928, end: 20041006
  2. FLUTICASONE PROPIONATE [Concomitant]
  3. LORATADINE [Concomitant]

REACTIONS (1)
  - TARDIVE DYSKINESIA [None]
